FAERS Safety Report 5814389-X (Version None)
Quarter: 2008Q3

REPORT INFORMATION
  Report Type: 
  Country: None (occurrence: None)
  Receive Date: 20080718
  Receipt Date: 20080711
  Transmission Date: 20090109
  Serious: Yes (Hospitalization)
  Sender: FDA-Public Use
  Company Number: US-BAYER-200820869NA

PATIENT
  Age: 28 Year
  Sex: Male
  Weight: 56 kg

DRUGS (17)
  1. CAMPATH [Suspect]
     Indication: ACUTE LYMPHOCYTIC LEUKAEMIA
     Dosage: AS USED: 5 MG
     Route: 058
     Dates: start: 20080202
  2. METHOTREXATE [Suspect]
     Indication: ACUTE LYMPHOCYTIC LEUKAEMIA
     Route: 042
     Dates: start: 20080207
  3. METHOTREXATE [Suspect]
     Route: 042
  4. VINCRISTINE [Suspect]
     Indication: ACUTE LYMPHOCYTIC LEUKAEMIA
     Route: 040
     Dates: start: 20080208
  5. ELSPAR [Suspect]
     Indication: ACUTE LYMPHOCYTIC LEUKAEMIA
     Route: 030
     Dates: start: 20080208
  6. DEXAMETHASONE [Suspect]
     Indication: ACUTE LYMPHOCYTIC LEUKAEMIA
     Dosage: TOTAL DAILY DOSE: 6 MG
     Route: 048
     Dates: start: 20080207
  7. BACTRIM DS [Concomitant]
     Route: 048
  8. DIFLUCAN [Concomitant]
     Dosage: TOTAL DAILY DOSE: 200 MG
     Route: 048
  9. EFFEXOR [Concomitant]
     Dosage: TOTAL DAILY DOSE: 75 MG
     Route: 048
  10. OXYCODONE HCL [Concomitant]
     Route: 048
  11. RANITIDINE HCL [Concomitant]
     Dosage: TOTAL DAILY DOSE: 150 MG
     Route: 048
  12. COMPAZINE [Concomitant]
     Route: 048
  13. SODIUM BICARBONATE [Concomitant]
     Dosage: TOTAL DAILY DOSE: 650 MG
     Route: 048
  14. DEXAMETHASONE [Concomitant]
     Dosage: TOTAL DAILY DOSE: 4 MG
     Route: 048
  15. ALLOPURINOL [Concomitant]
     Dosage: TOTAL DAILY DOSE: 300 MG
     Route: 048
  16. FAMCICLOVIR [Concomitant]
     Dosage: TOTAL DAILY DOSE: 1000 MG
     Route: 048
  17. LEVAQUIN [Concomitant]
     Dosage: TOTAL DAILY DOSE: 500 MG
     Route: 048

REACTIONS (6)
  - CATHETER RELATED INFECTION [None]
  - DYSPNOEA [None]
  - HYPONATRAEMIA [None]
  - PLATELET COUNT DECREASED [None]
  - PNEUMONIA STREPTOCOCCAL [None]
  - WHITE BLOOD CELL COUNT DECREASED [None]
